FAERS Safety Report 12097932 (Version 1)
Quarter: 2016Q1

REPORT INFORMATION
  Report Type: Other
  Country: US (occurrence: US)
  Receive Date: 20160221
  Receipt Date: 20160221
  Transmission Date: 20160526
  Serious: No
  Sender: FDA-Public Use
  Company Number: US-ACORDA-ACO_111161_2015

PATIENT
  Sex: Female
  Weight: 63.49 kg

DRUGS (6)
  1. METHENAMINE [Concomitant]
     Active Substance: METHENAMINE
     Indication: NEUROGENIC BLADDER
     Dosage: 1 G, BID
     Route: 048
  2. AMPYRA [Suspect]
     Active Substance: DALFAMPRIDINE
     Indication: PRODUCT USED FOR UNKNOWN INDICATION
     Dosage: UNK
     Route: 065
     Dates: start: 2010
  3. AMPYRA [Suspect]
     Active Substance: DALFAMPRIDINE
     Dosage: UNK
     Route: 065
     Dates: start: 20150601
  4. OXYBUTYNIN [Concomitant]
     Active Substance: OXYBUTYNIN
     Indication: NEUROGENIC BLADDER
     Dosage: 10 MG, BID
     Route: 048
  5. RITUXAN [Concomitant]
     Active Substance: RITUXIMAB
     Indication: MULTIPLE SCLEROSIS
     Dosage: Q 6 MONTHS
     Route: 042
     Dates: start: 201409, end: 201504
  6. PROLIA [Concomitant]
     Active Substance: DENOSUMAB
     Indication: OSTEOPOROSIS
     Dosage: Q 6 MONTHS
     Route: 058
     Dates: start: 201410, end: 201504

REACTIONS (3)
  - Drug ineffective [Unknown]
  - Therapeutic response unexpected [Unknown]
  - Condition aggravated [Unknown]
